FAERS Safety Report 5801330-9 (Version None)
Quarter: 2008Q3

REPORT INFORMATION
  Report Type: 
  Country: None (occurrence: None)
  Receive Date: 20080707
  Receipt Date: 20080627
  Transmission Date: 20090109
  Serious: Yes (Other)
  Sender: FDA-Public Use
  Company Number: US-JNJFOC-20080607033

PATIENT
  Age: 79 Year
  Sex: Female
  Weight: 47.63 kg

DRUGS (9)
  1. EXTRA STRENGTH TYLENOL [Suspect]
     Indication: INSOMNIA
     Dosage: NIGHTLY TIMES 1 MONTH
     Route: 048
  2. ACETAMINOPHEN/DIPHENHYDRAMINE [Suspect]
     Indication: INSOMNIA
     Dosage: NIGHTLY TIMES 1 MONTH
  3. PULMICORT-100 [Concomitant]
     Route: 055
  4. ALBUTEROL [Concomitant]
     Route: 055
  5. DIOVAN [Concomitant]
     Indication: HYPERTENSION
  6. POTASSIUM CHLORIDE [Concomitant]
     Indication: ELECTROLYTE SUBSTITUTION THERAPY
  7. HYDROCHLOROTHIAZIDE [Concomitant]
     Indication: FLUID RETENTION
  8. MULTI-VITAMIN [Concomitant]
  9. LEVOTHYROXINE SODIUM [Concomitant]
     Indication: THYROID DISORDER

REACTIONS (2)
  - DRUG ADMINISTRATION ERROR [None]
  - HAEMORRHAGE [None]
